FAERS Safety Report 24794786 (Version 1)
Quarter: 2024Q4

REPORT INFORMATION
  Report Type: Spontaneous
  Country: US (occurrence: None)
  Receive Date: 20241230
  Receipt Date: 20241230
  Transmission Date: 20250115
  Serious: Yes (Death)
  Sender: Public
  Company Number: None

PATIENT
  Age: 62 Year
  Sex: Male
  Weight: 76.5 kg

DRUGS (8)
  1. VALIUM [Suspect]
     Active Substance: DIAZEPAM
     Indication: Pelvic pain
     Dates: start: 20230501, end: 20241120
  2. LIBRIUM [Suspect]
     Active Substance: CHLORDIAZEPOXIDE HYDROCHLORIDE
  3. MORPHINE [Suspect]
     Active Substance: MORPHINE
  4. CYMBALTA [Suspect]
     Active Substance: DULOXETINE HYDROCHLORIDE
  5. SEROQUEL [Suspect]
     Active Substance: QUETIAPINE FUMARATE
  6. GABAPENTIN [Suspect]
     Active Substance: GABAPENTIN
  7. KEPPRA [Suspect]
     Active Substance: LEVETIRACETAM
  8. KETAMINE [Suspect]
     Active Substance: KETAMINE

REACTIONS (6)
  - Feeling abnormal [None]
  - Suicide attempt [None]
  - Drug detoxification [None]
  - Depression [None]
  - Anxiety [None]
  - Completed suicide [None]

NARRATIVE: CASE EVENT DATE: 20241120
